FAERS Safety Report 7441929-X (Version None)
Quarter: 2011Q2

REPORT INFORMATION
  Report Type: 
  Country: None (occurrence: None)
  Receive Date: 20110428
  Receipt Date: 20100520
  Transmission Date: 20111010
  Serious: No
  Sender: FDA-Public Use
  Company Number: US-ASTRAZENECA-2010SE23371

PATIENT
  Age: 56 Year
  Sex: Female
  Weight: 71.2 kg

DRUGS (5)
  1. NEXIUM [Concomitant]
     Indication: GASTROOESOPHAGEAL REFLUX DISEASE
  2. ZOMIG [Suspect]
     Indication: MIGRAINE
     Route: 048
     Dates: start: 20040101
  3. ZOCOR [Concomitant]
     Indication: HYPERCHOLESTEROLAEMIA
  4. LEVOXYL [Concomitant]
     Indication: THYROID DISORDER
  5. ATENALAC [Concomitant]

REACTIONS (2)
  - ASTHENIA [None]
  - NASOPHARYNGITIS [None]
